FAERS Safety Report 12864356 (Version 2)
Quarter: 2016Q4

REPORT INFORMATION
  Report Type: Spontaneous
  Country: US (occurrence: US)
  Receive Date: 20161020
  Receipt Date: 20161104
  Transmission Date: 20170207
  Serious: Yes (Hospitalization, Other)
  Sender: FDA-Public Use
  Company Number: US-009507513-1610USA005045

PATIENT
  Age: 63 Year
  Sex: Male

DRUGS (2)
  1. TICE BCG [Suspect]
     Active Substance: BACILLUS CALMETTE-GUERIN SUBSTRAIN TICE LIVE ANTIGEN
     Dosage: 10 CYCLES OF MAINTAINANCE THERAPY
     Route: 043
     Dates: start: 201303, end: 201408
  2. TICE BCG [Suspect]
     Active Substance: BACILLUS CALMETTE-GUERIN SUBSTRAIN TICE LIVE ANTIGEN
     Indication: BLADDER TRANSITIONAL CELL CARCINOMA
     Dosage: SIX CYCLES OF INDUCTION THERAPY
     Route: 043
     Dates: start: 201211, end: 201301

REACTIONS (2)
  - Infective aneurysm [Not Recovered/Not Resolved]
  - Coronary artery aneurysm [Not Recovered/Not Resolved]

NARRATIVE: CASE EVENT DATE: 2015
